FAERS Safety Report 7495958 (Version 3)
Quarter: 2013Q2

REPORT INFORMATION
  Report Type: Report from Study
  Country: US (occurrence: US)
  Receive Date: 20100722
  Receipt Date: 20130510
  Transmission Date: 20140414
  Serious: Yes (Hospitalization, Other)
  Sender: FDA-Public Use
  Company Number: US-ABBOTT-10P-163-0657121-00

PATIENT
  Age: 62 Year
  Sex: Female
  Weight: 90.35 kg

DRUGS (12)
  1. HUMIRA 40 MG/0.8 ML PEN [Suspect]
     Indication: RHEUMATOID ARTHRITIS
     Dates: start: 201001
  2. METHOTREXATE [Concomitant]
     Indication: RHEUMATOID ARTHRITIS
     Dosage: THURSDAY- 4 TABLETS AND FRIDAY- 4 TABLETS
     Dates: start: 200904, end: 201006
  3. BENICAR HCT [Concomitant]
     Indication: HYPERTENSION
     Dosage: DAILY DOSE: 1- 20/12.5MG
     Route: 048
     Dates: start: 2007
  4. AMBIEN CR [Concomitant]
     Indication: INSOMNIA
     Dosage: EVERY NIGHT
     Route: 048
  5. ALPRAZOLAM [Concomitant]
     Indication: ANXIETY
     Route: 048
  6. CYCLOBENZAPRINE HYDROCHLORIDE [Concomitant]
     Indication: INSOMNIA
     Dosage: AT BEDTIME AS NEEDED
  7. CYCLOBENZAPRINE HYDROCHLORIDE [Concomitant]
     Indication: FEELING OF RELAXATION
  8. NEXIUM [Concomitant]
     Indication: GASTROOESOPHAGEAL REFLUX DISEASE
     Route: 048
     Dates: end: 2012
  9. FOLIC ACID [Concomitant]
     Indication: PRODUCT USED FOR UNKNOWN INDICATION
     Route: 048
     Dates: end: 201006
  10. ZOLOFT [Concomitant]
     Indication: DEPRESSION
     Route: 048
  11. TRAMADOL [Concomitant]
     Indication: PAIN
  12. ASPIRIN [Concomitant]
     Indication: THROMBOSIS PROPHYLAXIS
     Dates: start: 201304

REACTIONS (25)
  - Endometrial hypertrophy [Recovered/Resolved]
  - Visual field defect [Unknown]
  - Pulmonary embolism [Recovering/Resolving]
  - Vascular pain [Recovering/Resolving]
  - Vasodilatation [Recovering/Resolving]
  - Pain [Recovering/Resolving]
  - Thrombophlebitis superficial [Recovering/Resolving]
  - Pain in extremity [Recovering/Resolving]
  - Nausea [Not Recovered/Not Resolved]
  - Diarrhoea [Not Recovered/Not Resolved]
  - Heart rate decreased [Recovering/Resolving]
  - Fatigue [Unknown]
  - Decreased appetite [Unknown]
  - Incorrect drug administration rate [Unknown]
  - Device malfunction [Unknown]
  - Injection site papule [Unknown]
  - Injection site extravasation [Unknown]
  - Device malfunction [Unknown]
  - Incorrect dose administered [Unknown]
  - Alopecia [Unknown]
  - Seasonal allergy [Unknown]
  - Incorrect route of drug administration [Unknown]
  - Wrong technique in drug usage process [Unknown]
  - Injection site pain [Unknown]
  - Injection site pain [Unknown]
